FAERS Safety Report 9849300 (Version 1)
Quarter: 2014Q1

REPORT INFORMATION
  Report Type: Spontaneous
  Country: US (occurrence: None)
  Receive Date: 20140127
  Receipt Date: 20140127
  Transmission Date: 20141002
  Serious: Yes (Disabling, Other)
  Sender: FDA-Public Use
  Company Number: None

PATIENT
  Age: 67 Year
  Sex: Male
  Weight: 79.38 kg

DRUGS (1)
  1. TRAZODONE [Suspect]
     Indication: INSOMNIA

REACTIONS (3)
  - Narcolepsy [None]
  - Arthralgia [None]
  - Myalgia [None]
